FAERS Safety Report 13526555 (Version 1)
Quarter: 2017Q2

REPORT INFORMATION
  Report Type: Spontaneous
  Country: US (occurrence: US)
  Receive Date: 20170509
  Receipt Date: 20170509
  Transmission Date: 20170830
  Serious: No
  Sender: FDA-Public Use
  Company Number: US-TEVA-762501USA

PATIENT
  Age: 51 Year
  Sex: Female
  Weight: 137.56 kg

DRUGS (5)
  1. NUVIGIL [Suspect]
     Active Substance: ARMODAFINIL
     Indication: SHIFT WORK DISORDER
     Dosage: 250 MILLIGRAM DAILY;
     Dates: start: 2014
  2. NUVIGIL [Suspect]
     Active Substance: ARMODAFINIL
     Indication: SLEEP APNOEA SYNDROME
  3. POTASSIUM PILL [Concomitant]
  4. LEXAPRO [Concomitant]
     Active Substance: ESCITALOPRAM OXALATE
  5. FUROSEMIDE. [Concomitant]
     Active Substance: FUROSEMIDE

REACTIONS (4)
  - Pruritus [Unknown]
  - Dermal cyst [Unknown]
  - Blister [Unknown]
  - Rash [Unknown]

NARRATIVE: CASE EVENT DATE: 201702
